FAERS Safety Report 23935899 (Version 1)
Quarter: 2024Q2

REPORT INFORMATION
  Report Type: Spontaneous
  Country: FR (occurrence: FR)
  Receive Date: 20240604
  Receipt Date: 20240604
  Transmission Date: 20240716
  Serious: Yes (Hospitalization, Other)
  Sender: FDA-Public Use
  Company Number: FR-SA-2024SA164422

PATIENT
  Age: 82 Year
  Sex: Female

DRUGS (7)
  1. DUPILUMAB [Suspect]
     Active Substance: DUPILUMAB
     Indication: Neurodermatitis
     Dosage: 300 MG, QOW
     Route: 058
  2. CORTICOSTEROID NOS [Suspect]
     Active Substance: CORTICOSTEROID NOS
     Indication: Giant cell arteritis
     Dosage: UNK
     Dates: start: 2006, end: 2021
  3. PERINDOPRIL [Concomitant]
     Active Substance: PERINDOPRIL
     Dosage: UNK
  4. BISOPROLOL [Concomitant]
     Active Substance: BISOPROLOL\BISOPROLOL FUMARATE
     Dosage: UNK
  5. LEVOTHYROXINE [Concomitant]
     Active Substance: LEVOTHYROXINE\LEVOTHYROXINE SODIUM
     Dosage: UNK
  6. MAGNESIUM [Concomitant]
     Active Substance: MAGNESIUM
     Dosage: UNK
  7. IRON [Concomitant]
     Active Substance: IRON
     Dosage: UNK
     Route: 048

REACTIONS (12)
  - Hepatic echinococciasis [Unknown]
  - Hyponatraemia [Unknown]
  - Hepatic mass [Unknown]
  - Necrosis ischaemic [Unknown]
  - Asthenia [Unknown]
  - Pruritus [Unknown]
  - Eosinophilia [Unknown]
  - Inflammation [Unknown]
  - Pulmonary infarction [Unknown]
  - Hypermetabolism [Unknown]
  - Pulmonary fibrosis [Unknown]
  - Granuloma [Unknown]

NARRATIVE: CASE EVENT DATE: 20220701
